FAERS Safety Report 10630130 (Version 1)
Quarter: 2014Q4

REPORT INFORMATION
  Report Type: Spontaneous
  Country: US (occurrence: US)
  Receive Date: 20141205
  Receipt Date: 20141205
  Transmission Date: 20150529
  Serious: No
  Sender: FDA-Public Use
  Company Number: US-BRISTOL-MYERS SQUIBB COMPANY-21377478

PATIENT
  Age: 74 Year
  Sex: Male

DRUGS (1)
  1. ELIQUIS [Suspect]
     Active Substance: APIXABAN

REACTIONS (5)
  - Osteoarthritis [Unknown]
  - Rotator cuff syndrome [Unknown]
  - Swelling [Unknown]
  - Joint injury [Unknown]
  - Myalgia [Unknown]
